FAERS Safety Report 7146345-6 (Version None)
Quarter: 2010Q4

REPORT INFORMATION
  Report Type: 
  Country: None (occurrence: None)
  Receive Date: 20101208
  Receipt Date: 20101130
  Transmission Date: 20110411
  Serious: Yes (Other)
  Sender: FDA-Public Use
  Company Number: US-PFIZER INC-2010162443

PATIENT
  Sex: Female
  Weight: 56.699 kg

DRUGS (12)
  1. GABAPENTIN [Suspect]
     Indication: RHEUMATOID ARTHRITIS
     Dosage: 100 MG, 1X/DAY AT NIGHT
     Route: 048
     Dates: start: 20101007, end: 20101001
  2. PREDNISONE [Suspect]
     Indication: RHEUMATOID ARTHRITIS
     Dosage: 20 MG, 2X/DAY
     Dates: start: 20100801
  3. PREDNISONE [Suspect]
     Dosage: 10 MG, 2X/DAY
     Route: 048
     Dates: start: 20101001
  4. OXYGEN [Concomitant]
     Dosage: 2 L, UNK
  5. THEOPHYLLINE [Concomitant]
     Dosage: 200 MG, 3X/DAY
     Route: 048
  6. ALBUTEROL [Concomitant]
     Dosage: UNK, 3X-5X/DAY
     Route: 045
  7. ALBUTEROL [Concomitant]
  8. FLOVENT [Concomitant]
     Dosage: 2 PUFFS 2X/DAILY
     Route: 045
  9. SPIRIVA [Concomitant]
  10. VALSARTAN [Concomitant]
     Indication: BLOOD PRESSURE INCREASED
     Route: 048
  11. ALPRAZOLAM [Concomitant]
     Dosage: 0.5 MG, 3X/DAY
     Route: 048
  12. PREMPRO [Concomitant]
     Dosage: UNK
     Route: 048

REACTIONS (9)
  - ATAXIA [None]
  - CONFUSIONAL STATE [None]
  - DISTURBANCE IN ATTENTION [None]
  - FINE MOTOR DELAY [None]
  - MANIA [None]
  - MENTAL IMPAIRMENT [None]
  - PHOTOPSIA [None]
  - SENSORY DISTURBANCE [None]
  - VISION BLURRED [None]
